FAERS Safety Report 23482562 (Version 2)
Quarter: 2024Q2

REPORT INFORMATION
  Report Type: Report from Study
  Country: US (occurrence: US)
  Receive Date: 20240205
  Receipt Date: 20240425
  Transmission Date: 20240716
  Serious: Yes (Hospitalization, Other)
  Sender: FDA-Public Use
  Company Number: US-OTSUKA-2024_002360

PATIENT
  Age: 63 Year
  Sex: Female
  Weight: 54.43 kg

DRUGS (11)
  1. TOLVAPTAN [Suspect]
     Active Substance: TOLVAPTAN
     Indication: Congenital cystic kidney disease
     Dosage: UNK
     Route: 065
     Dates: start: 20231026, end: 20240125
  2. ACETAMINOPHEN [Concomitant]
     Active Substance: ACETAMINOPHEN
     Indication: Product used for unknown indication
     Dosage: 1 DF, AS NECESSARY (PRN)
     Route: 048
  3. DILTIAZEM [Concomitant]
     Active Substance: DILTIAZEM
     Indication: Product used for unknown indication
     Dosage: 125 MG (5 MG PER HOUR)
     Route: 042
  4. SODIUM CHLORIDE [Concomitant]
     Active Substance: SODIUM CHLORIDE
     Indication: Product used for unknown indication
     Dosage: 100 ML
     Route: 042
  5. SODIUM CHLORIDE [Concomitant]
     Active Substance: SODIUM CHLORIDE
     Dosage: 1000 ML
     Route: 042
  6. ED A HIST [Concomitant]
     Indication: Product used for unknown indication
     Dosage: 1 DF, TID
     Route: 048
  7. ELIQUIS [Concomitant]
     Active Substance: APIXABAN
     Indication: Product used for unknown indication
     Dosage: 0.5 DF, BID
     Route: 048
  8. PEPCID [Concomitant]
     Active Substance: FAMOTIDINE
     Indication: Product used for unknown indication
     Dosage: 20 MG, BID (20 MG=2 ML, IV PUSH EVERY 12 HR PRN)
     Route: 042
  9. CEFTRIAXONE SODIUM [Concomitant]
     Active Substance: CEFTRIAXONE SODIUM
     Indication: Product used for unknown indication
     Dosage: UNK UNK, BID (1 G=50 ML EVERY 12 HR)
     Route: 042
  10. ZOFRAN [Concomitant]
     Active Substance: ONDANSETRON HYDROCHLORIDE
     Indication: Product used for unknown indication
     Dosage: UNK (4 MG=2 ML EVERY SIX HR, PRN)
     Route: 042
  11. LISINOPRIL [Concomitant]
     Active Substance: LISINOPRIL
     Indication: Product used for unknown indication
     Dosage: 20 MG
     Route: 048

REACTIONS (45)
  - Atrial fibrillation [Unknown]
  - Illness [Unknown]
  - Oropharyngeal pain [Unknown]
  - Thrombocytopenia [Unknown]
  - Vomiting [Unknown]
  - Pyrexia [Unknown]
  - Nausea [Unknown]
  - Glomerular filtration rate decreased [Unknown]
  - Diarrhoea [Unknown]
  - Influenza like illness [Unknown]
  - Troponin increased [Recovered/Resolved]
  - Arthritis [Unknown]
  - Anaemia of chronic disease [Unknown]
  - Lymphocyte percentage decreased [Recovered/Resolved]
  - Lymphocyte percentage increased [Recovered/Resolved]
  - Mean cell haemoglobin increased [Recovered/Resolved]
  - Mean cell haemoglobin increased [Unknown]
  - Mean platelet volume increased [Unknown]
  - Lymphocyte count decreased [Recovered/Resolved]
  - Neutrophil percentage increased [Recovered/Resolved]
  - Neutrophil percentage decreased [Unknown]
  - Neutrophil count increased [Recovered/Resolved]
  - Blood calcium decreased [Unknown]
  - Carbon dioxide decreased [Unknown]
  - Blood chloride decreased [Recovered/Resolved]
  - Blood albumin decreased [Unknown]
  - Blood phosphorus increased [Unknown]
  - Protein total decreased [Unknown]
  - Blood creatine phosphokinase increased [Recovered/Resolved]
  - Hypophagia [Unknown]
  - Haematocrit decreased [Unknown]
  - Red blood cell count decreased [Unknown]
  - Hyponatraemia [Unknown]
  - Blood sodium decreased [Recovered/Resolved]
  - Blood alkaline phosphatase increased [Unknown]
  - Haemoglobin decreased [Unknown]
  - Gastroenteritis [Unknown]
  - Urinary tract infection [Unknown]
  - Blood urea increased [Unknown]
  - Asthenia [Unknown]
  - Dehydration [Unknown]
  - Dizziness [Unknown]
  - Aspartate aminotransferase increased [Recovered/Resolved]
  - Aspartate aminotransferase increased [Unknown]
  - Rash [Unknown]

NARRATIVE: CASE EVENT DATE: 20240117
